FAERS Safety Report 15188764 (Version 1)
Quarter: 2018Q3

REPORT INFORMATION
  Report Type: Spontaneous
  Country: US (occurrence: US)
  Receive Date: 20180625
  Receipt Date: 20180625
  Transmission Date: 20181010
  Serious: No
  Sender: FDA-Public Use
  Company Number: None

PATIENT
  Age: 50 Year
  Sex: Female
  Weight: 61.2 kg

DRUGS (6)
  1. GUANFACINE. [Concomitant]
     Active Substance: GUANFACINE
  2. FLUCTICASON PROPIONATE (GLUCOSTEROID) 50 MCG PER SPRAY [Suspect]
     Active Substance: FLUTICASONE PROPIONATE
     Indication: RHINITIS ALLERGIC
     Dosage: ?          QUANTITY:4 SPRAY(S);?
     Route: 055
     Dates: start: 20180619, end: 20180625
  3. FOCALIN XR [Concomitant]
     Active Substance: DEXMETHYLPHENIDATE HYDROCHLORIDE
  4. SERTRALINE [Concomitant]
     Active Substance: SERTRALINE HYDROCHLORIDE
  5. PROBIOTICS [Concomitant]
     Active Substance: PROBIOTICS NOS
  6. MULTI VITAMIN [Concomitant]
     Active Substance: VITAMINS

REACTIONS (3)
  - Negative thoughts [None]
  - Insomnia [None]
  - Anxiety [None]

NARRATIVE: CASE EVENT DATE: 20180625
